FAERS Safety Report 4871632-1 (Version None)
Quarter: 2006Q1

REPORT INFORMATION
  Report Type: 
  Country: None (occurrence: None)
  Receive Date: 20060104
  Receipt Date: 20051229
  Transmission Date: 20060701
  Serious: Yes (Hospitalization)
  Sender: FDA-Public Use
  Company Number: PHNU2005DE04283

PATIENT
  Sex: Male

DRUGS (12)
  1. CLOZAPINE [Suspect]
     Indication: SCHIZOPHRENIA
     Dosage: 25 TO 350MG/DAY
     Route: 048
     Dates: start: 20041027, end: 20050220
  2. LEPONEX / CLOZARIL (CLOZAPINE) [Suspect]
     Dosage: 375 MG/DAY
     Route: 048
     Dates: start: 20050221, end: 20050224
  3. CLOZAPINE [Suspect]
     Dosage: 400 MG/DAY
     Route: 048
     Dates: start: 20050225
  4. CIPRAMIL /NET/ [Suspect]
     Dosage: 20 MG, QD
     Route: 048
     Dates: start: 20050205, end: 20050217
  5. CIPRAMIL /NET/ [Suspect]
     Dosage: 30 MG/DAY
     Route: 048
     Dates: start: 20050218, end: 20050303
  6. CIPRAMIL /NET/ [Suspect]
     Dosage: 40 MG/DAY
     Route: 048
     Dates: start: 20050304
  7. DIPIPERON [Suspect]
     Dosage: 40 MG/DAY
     Route: 048
     Dates: start: 20050215, end: 20050301
  8. DIPIPERON [Suspect]
     Dosage: 20 MG/DAY
     Route: 048
     Dates: start: 20050302
  9. LORAZEPAM [Concomitant]
     Dosage: 0.5 MG, QD
     Route: 048
     Dates: start: 20050101
  10. NEXIUM [Concomitant]
     Dosage: 20 MG, QD
     Route: 048
     Dates: start: 20041101
  11. LIORESAL [Suspect]
     Dosage: 75 MG/DAY
     Route: 048
     Dates: start: 20041101, end: 20050303
  12. LIORESAL [Suspect]
     Dosage: 62.5 MG/DAY
     Route: 048
     Dates: start: 20050304

REACTIONS (2)
  - HYPOTONIA [None]
  - PLEUROTHOTONUS [None]
